FAERS Safety Report 12958245 (Version 1)
Quarter: 2016Q4

REPORT INFORMATION
  Report Type: Other
  Country: ES (occurrence: ES)
  Receive Date: 20161120
  Receipt Date: 20161120
  Transmission Date: 20170207
  Serious: Yes (Other)
  Sender: FDA-Public Use
  Company Number: ES-LUPIN PHARMACEUTICALS INC.-2016-04696

PATIENT
  Age: 79 Year
  Sex: Female

DRUGS (3)
  1. LENALIDOMIDE [Suspect]
     Active Substance: LENALIDOMIDE
     Indication: BLASTIC PLASMACYTOID DENDRITIC CELL NEOPLASIA
     Dosage: 20 MG FOR THREE OF EVERY 4 WEEKS
     Route: 065
     Dates: start: 201403
  2. CELECOXIB. [Suspect]
     Active Substance: CELECOXIB
     Indication: BLASTIC PLASMACYTOID DENDRITIC CELL NEOPLASIA
     Route: 065
     Dates: start: 201403
  3. CARBIMAZOL [Concomitant]
     Active Substance: CARBIMAZOLE
     Indication: TOXIC NODULAR GOITRE
     Route: 065

REACTIONS (2)
  - Hepatic failure [Recovering/Resolving]
  - Renal failure [Recovered/Resolved]
